FAERS Safety Report 26076074 (Version 1)
Quarter: 2025Q4

REPORT INFORMATION
  Report Type: Spontaneous
  Country: US (occurrence: None)
  Receive Date: 20251121
  Receipt Date: 20251121
  Transmission Date: 20260118
  Serious: Yes (Other)
  Sender: FDA-CTU
  Company Number: None

PATIENT
  Age: 67 Year
  Sex: Female
  Weight: 108 kg

DRUGS (28)
  1. KESIMPTA [Suspect]
     Active Substance: OFATUMUMAB
     Indication: Relapsing multiple sclerosis
     Dosage: OTHER QUANTITY : 1 INJECTION(S)?OTHER FREQUENCY : 1 MONTHLY?
     Route: 058
     Dates: start: 20251119, end: 20251119
  2. albuterol rescue inhaler (Ventolin) 90mcg [Concomitant]
  3. atorvastatin 40mg 1x per day [Concomitant]
  4. Citalopram 40mg 1x daily [Concomitant]
  5. CLONIDINE [Concomitant]
     Active Substance: CLONIDINE
  6. Epi-Pen Injector .15mg [Concomitant]
  7. hydralazine 2 per day [Concomitant]
  8. levothyroxine 112 MCG 1 per day [Concomitant]
  9. liothyronine 5 MCG 3 per day [Concomitant]
  10. Losartan 50mg 2x daily [Concomitant]
  11. MIRABEGRON [Concomitant]
     Active Substance: MIRABEGRON
  12. METOPROLOL [Concomitant]
     Active Substance: METOPROLOL
  13. montelukast 10mg 1x daily [Concomitant]
  14. nifedipine 90mg [Concomitant]
  15. Nystatin Powder 100000unit/gm [Concomitant]
  16. pantoprazole sodium 20mg [Concomitant]
  17. ropinirole 3mg 2 x daily [Concomitant]
  18. tizanidine HCl 4 MG 2 per day [Concomitant]
  19. TRAZODONE [Concomitant]
     Active Substance: TRAZODONE HYDROCHLORIDE
  20. valacyclovir HCl 1 GM 1 per day [Concomitant]
  21. EXCEDRIN [Concomitant]
     Active Substance: ACETAMINOPHEN\ASPIRIN\CAFFEINE
  22. Immodium AD 2mg [Concomitant]
  23. NeoSynifrine nasal spray [Concomitant]
  24. Oxymetzoline HCI .05% nasal spray [Concomitant]
  25. Chromium GTF 200mcg [Concomitant]
  26. Probiotic caps 30B/10 Strains [Concomitant]
  27. Vitamin D3 2000IU [Concomitant]
  28. Choline/inistol [Concomitant]

REACTIONS (4)
  - Pyrexia [None]
  - Nausea [None]
  - Vomiting [None]
  - Musculoskeletal chest pain [None]

NARRATIVE: CASE EVENT DATE: 20251119
